FAERS Safety Report 24388498 (Version 1)
Quarter: 2024Q4

REPORT INFORMATION
  Report Type: Spontaneous
  Country: CN (occurrence: CN)
  Receive Date: 20241002
  Receipt Date: 20241002
  Transmission Date: 20250115
  Serious: Yes (Hospitalization, Other)
  Sender: PFIZER
  Company Number: CN-PFIZER INC-PV202400126974

PATIENT
  Age: 75 Year
  Sex: Male
  Weight: 64 kg

DRUGS (9)
  1. EPIRUBICIN HYDROCHLORIDE [Suspect]
     Active Substance: EPIRUBICIN HYDROCHLORIDE
     Indication: Diffuse large B-cell lymphoma
     Dosage: 80 MG, 1X/DAY
     Route: 041
     Dates: start: 20240920, end: 20240920
  2. EPIRUBICIN HYDROCHLORIDE [Suspect]
     Active Substance: EPIRUBICIN HYDROCHLORIDE
     Indication: Chemotherapy
  3. RITUXIMAB [Suspect]
     Active Substance: RITUXIMAB
     Indication: Diffuse large B-cell lymphoma
     Dosage: 690 MG, 1X/DAY
     Route: 041
     Dates: start: 20240920, end: 20240920
  4. RITUXIMAB [Suspect]
     Active Substance: RITUXIMAB
     Indication: Chemotherapy
  5. CYCLOPHOSPHAMIDE [Suspect]
     Active Substance: CYCLOPHOSPHAMIDE
     Indication: Diffuse large B-cell lymphoma
     Dosage: 1 G, 1X/DAY
     Route: 041
     Dates: start: 20240920, end: 20240920
  6. CYCLOPHOSPHAMIDE [Suspect]
     Active Substance: CYCLOPHOSPHAMIDE
     Indication: Chemotherapy
  7. VINDESINE SULFATE [Suspect]
     Active Substance: VINDESINE SULFATE
     Indication: Diffuse large B-cell lymphoma
     Dosage: 4 MG, 1X/DAY
     Route: 041
     Dates: start: 20240920, end: 20240920
  8. VINDESINE SULFATE [Suspect]
     Active Substance: VINDESINE SULFATE
     Indication: Chemotherapy
  9. PREDNISONE ACETATE [Concomitant]
     Active Substance: PREDNISONE ACETATE
     Dosage: 100 MG, 1X/DAY
     Route: 048
     Dates: start: 20240920, end: 20240920

REACTIONS (2)
  - Myelosuppression [Recovering/Resolving]
  - Asthenia [Recovering/Resolving]

NARRATIVE: CASE EVENT DATE: 20240925
